FAERS Safety Report 6162816-3 (Version None)
Quarter: 2009Q2

REPORT INFORMATION
  Report Type: 
  Country: None (occurrence: None)
  Receive Date: 20090421
  Receipt Date: 20090212
  Transmission Date: 20091009
  Serious: No
  Sender: FDA-Public Use
  Company Number: US-ASTRAZENECA-2009UW04078

PATIENT
  Age: 68 Year
  Sex: Male

DRUGS (7)
  1. TOPROL-XL [Suspect]
     Indication: MITRAL VALVE DISEASE
     Route: 048
     Dates: start: 20090210
  2. DIGOXIN [Concomitant]
  3. CARDIZEM CD [Concomitant]
  4. VASOTEC [Concomitant]
  5. LASIX [Concomitant]
  6. POTASSIUM CHLORIDE [Concomitant]
  7. COUMADIN [Concomitant]

REACTIONS (4)
  - ABDOMINAL PAIN UPPER [None]
  - FEELING ABNORMAL [None]
  - MYALGIA [None]
  - PYREXIA [None]
